FAERS Safety Report 10081805 (Version 5)
Quarter: 2014Q2

REPORT INFORMATION
  Report Type: Report from Study
  Country: US (occurrence: US)
  Receive Date: 20140416
  Receipt Date: 20140618
  Transmission Date: 20141212
  Serious: Yes (Life-Threatening, Hospitalization)
  Sender: FDA-Public Use
  Company Number: US-ACTELION-A-US2013-89344

PATIENT
  Age: 17 Year
  Sex: Male

DRUGS (2)
  1. TRACLEER [Suspect]
     Indication: PULMONARY HYPERTENSION
     Dosage: 125 MG, BID
     Route: 048
     Dates: start: 20130618
  2. ADCIRCA [Concomitant]

REACTIONS (6)
  - Oxygen saturation decreased [Unknown]
  - Pulmonary hypertension [Recovering/Resolving]
  - Dyspnoea [Recovering/Resolving]
  - Hypoxia [Recovering/Resolving]
  - Dyspnoea exertional [Unknown]
  - Dizziness [Unknown]
